FAERS Safety Report 21399300 (Version 1)
Quarter: 2022Q4

REPORT INFORMATION
  Report Type: Spontaneous
  Country: ES (occurrence: ES)
  Receive Date: 20221001
  Receipt Date: 20221001
  Transmission Date: 20230112
  Serious: Yes (Hospitalization)
  Sender: FDA-Public Use
  Company Number: None

PATIENT
  Age: 82 Year
  Sex: Female

DRUGS (11)
  1. IBUPROFEN [Suspect]
     Active Substance: IBUPROFEN
     Indication: Pain
     Dosage: 1200 MILLIGRAM DAILY; 600.0 MG C/12 H,  (1769A)
     Dates: start: 20211207
  2. MOTILIUM [Concomitant]
     Active Substance: DOMPERIDONE
     Indication: Atrial fibrillation
     Dosage: 10.0 MG A-DECOCE, MOTILIUM 1 MG/ML SUSPENSION ORAL, 1 FRASCO DE 200 ML
     Dates: start: 20220831, end: 20220901
  3. ENALAPRIL [Concomitant]
     Active Substance: ENALAPRIL
     Indication: Essential hypertension
     Dosage: 5.0 MG DECO, ENALAPRIL NORMON 5 MG  COMPRIMIDOS EFG, 60 COMPRIMIDOS
     Dates: start: 20191002
  4. STALEVO [Concomitant]
     Active Substance: CARBIDOPA\ENTACAPONE\LEVODOPA
     Indication: Epilepsy
     Dosage: 6 DOSAGE FORMS DAILY; 1.0 COMP EVERY 4 HOURS, STALEVO 150 MG/37,5 MG/200 MG COMPRIMIDOS RECUBIERTOS
     Dates: start: 20220704
  5. DIGOXIN [Concomitant]
     Active Substance: DIGOXIN
     Indication: Atrial fibrillation
     Dosage: .125 MILLIGRAM DAILY; ?DIGOXINA KERN PHARMA 0,25 MG COMPRIMIDOS , 50 COMPRIMIDOS
     Dates: start: 20220831
  6. CLONAZEPAM [Concomitant]
     Active Substance: CLONAZEPAM
     Indication: Senile dementia
     Dosage: 8.0 MG CE, CLONAZEPAM BIOMED 2 MG COMPRIMIDOS EFG , 60 COMPRIMIDOS
     Dates: start: 20211109
  7. ACETAMINOPHEN\TRAMADOL [Concomitant]
     Active Substance: ACETAMINOPHEN\TRAMADOL
     Indication: Pain
     Dosage: 2 DOSAGE FORMS DAILY; 1.0 COMP C/12 H, TRAMADOL PARACETAMOL CINFA 37,5 MG/325 MG COMPRIMIDOS RECUBIE
     Dates: start: 20220816, end: 20220825
  8. QUETIAPINE [Concomitant]
     Active Substance: QUETIAPINE
     Indication: Senile dementia
     Dosage: 25.0 MG A-DECE, QUETIAPINA CINFA 25 MG COMPRIMIDOS RECUBIERTOS CON PELICULA EFG,60 COMPRIMIDOS
     Dates: start: 20220519
  9. OMEPRAZOLE [Concomitant]
     Active Substance: OMEPRAZOLE
     Indication: Renal impairment
     Dosage: 20.0 MG DECE, OMEPRAZOL CINFAMED 20 MG CAPSULAS DURAS GASTRORESISTENTES EFG , 56 CAPSULAS
     Dates: start: 20180905
  10. CYANOCOBALAMIN [Concomitant]
     Active Substance: CYANOCOBALAMIN
     Indication: Pernicious anaemia
     Dosage: 1.0 MG C/7 DIAS, OPTOVITE B12 1.000 MICROGRAMOS SOLUCION INYECTABLE , 5 AMPOLLAS DE 2 ML
     Dates: start: 20210113
  11. LEVETIRACETAM [Concomitant]
     Active Substance: LEVETIRACETAM
     Indication: Senile dementia
     Dosage: 500.0 MG DE
     Dates: start: 20220520

REACTIONS (1)
  - Upper gastrointestinal haemorrhage [Recovering/Resolving]

NARRATIVE: CASE EVENT DATE: 20220901
